FAERS Safety Report 18399364 (Version 1)
Quarter: 2020Q4

REPORT INFORMATION
  Report Type: Spontaneous
  Country: AU (occurrence: AU)
  Receive Date: 20201019
  Receipt Date: 20201019
  Transmission Date: 20210114
  Serious: Yes (Life-Threatening)
  Sender: FDA-Public Use
  Company Number: AU-PFIZER INC-2020395998

PATIENT
  Age: 56 Year
  Sex: Male

DRUGS (20)
  1. MORPHINE [Concomitant]
     Active Substance: MORPHINE
     Indication: SEDATION
     Dosage: UNK
  2. NOREPINEPHRINE BITARTRATE. [Suspect]
     Active Substance: NOREPINEPHRINE BITARTRATE
     Dosage: 0.2 UG/KG/MIN
  3. MIDAZOLAM. [Concomitant]
     Active Substance: MIDAZOLAM
     Indication: SEDATION
     Dosage: 5 MG/H
  4. EPINEPHRINE. [Suspect]
     Active Substance: EPINEPHRINE
     Indication: SEPTIC SHOCK
     Dosage: 1 MG
     Route: 042
  5. EPINEPHRINE. [Suspect]
     Active Substance: EPINEPHRINE
     Dosage: INFUSION OF 1.0 UG/KG/MIN
     Route: 042
  6. NOREPINEPHRINE BITARTRATE. [Suspect]
     Active Substance: NOREPINEPHRINE BITARTRATE
     Dosage: 0.34 UG/KG/MIN
  7. NOREPINEPHRINE BITARTRATE. [Suspect]
     Active Substance: NOREPINEPHRINE BITARTRATE
     Dosage: 0.26 UG/KG/MIN
  8. SALBUTAMOL [Concomitant]
     Active Substance: ALBUTEROL
     Dosage: 100 UG (METERED DOSE INHALER)
  9. HEPARIN [Concomitant]
     Active Substance: HEPARIN SODIUM
     Indication: ATRIAL FIBRILLATION
     Dosage: UNK (LOW MOLECULAR WEIGHT)
  10. NOREPINEPHRINE BITARTRATE. [Suspect]
     Active Substance: NOREPINEPHRINE BITARTRATE
     Dosage: LOW DOSES (BETWEEN 0.01 TO 0.1 UG/KG/MIN)
  11. DOBUTAMINE HCL [Suspect]
     Active Substance: DOBUTAMINE HYDROCHLORIDE
     Dosage: 7.5 UG/KG/MIN INFUSION
  12. MIXTARD [INSULIN;ISOPHANE INSULIN] [Concomitant]
     Indication: TYPE 2 DIABETES MELLITUS
     Dosage: 32 UNITS MANE AND 20 UNITS NOCTE
  13. GENTAMICIN. [Concomitant]
     Active Substance: GENTAMICIN
     Indication: PNEUMONIA ASPIRATION
     Dosage: 320 MG AS PER DRUG LEVELS
  14. EPINEPHRINE. [Suspect]
     Active Substance: EPINEPHRINE
     Indication: VENTRICULAR FIBRILLATION
     Dosage: 1 MG
     Route: 042
  15. NOREPINEPHRINE BITARTRATE. [Suspect]
     Active Substance: NOREPINEPHRINE BITARTRATE
     Dosage: DECREASED BY TWO THIRDS
  16. DOBUTAMINE HCL [Suspect]
     Active Substance: DOBUTAMINE HYDROCHLORIDE
     Indication: SEPTIC SHOCK
     Dosage: 20 UG/KG/MIN INFUSION
  17. TIMENTIN [CLAVULANATE POTASSIUM;TICARCILLIN DISODIUM] [Concomitant]
     Indication: PNEUMONIA ASPIRATION
     Dosage: 3.1 G, 4X/DAY
  18. NOREPINEPHRINE BITARTRATE. [Suspect]
     Active Substance: NOREPINEPHRINE BITARTRATE
     Indication: SEPTIC SHOCK
     Dosage: 1 UG/KG/MIN
  19. AMIODARONE [Concomitant]
     Active Substance: AMIODARONE
     Indication: ATRIAL FIBRILLATION
     Dosage: UNK (INFUSION)
  20. AMIODARONE [Concomitant]
     Active Substance: AMIODARONE
     Dosage: 300 MG
     Route: 042

REACTIONS (1)
  - Drug ineffective [Unknown]
